FAERS Safety Report 18091186 (Version 2)
Quarter: 2020Q3

REPORT INFORMATION
  Report Type: Report from Study
  Country: BR (occurrence: BR)
  Receive Date: 20200730
  Receipt Date: 20200921
  Transmission Date: 20201103
  Serious: Yes (Other)
  Sender: FDA-Public Use
  Company Number: BR-TAKEDA-2017TUS014954

PATIENT
  Age: 48 Year
  Sex: Female

DRUGS (1)
  1. VEDOLIZUMAB [Suspect]
     Active Substance: VEDOLIZUMAB
     Indication: CROHN^S DISEASE
     Dosage: 300 MILLIGRAM
     Route: 042
     Dates: start: 20170322

REACTIONS (4)
  - Off label use [Unknown]
  - Anal fissure [Unknown]
  - Syncope [Unknown]
  - Headache [Unknown]

NARRATIVE: CASE EVENT DATE: 20170510
